FAERS Safety Report 15851429 (Version 3)
Quarter: 2019Q1

REPORT INFORMATION
  Report Type: Spontaneous
  Country: AR (occurrence: AR)
  Receive Date: 20190122
  Receipt Date: 20190327
  Transmission Date: 20190417
  Serious: Yes (Other)
  Sender: FDA-Public Use
  Company Number: AR-AMGEN-ARGSP2019008903

PATIENT
  Age: 52 Year
  Sex: Female

DRUGS (1)
  1. ENBREL [Suspect]
     Active Substance: ETANERCEPT
     Indication: RHEUMATOID ARTHRITIS
     Dosage: 50 MG, WEEKLY
     Route: 065
     Dates: start: 20140606

REACTIONS (7)
  - Cataract [Not Recovered/Not Resolved]
  - Renal disorder [Unknown]
  - Uterine prolapse [Not Recovered/Not Resolved]
  - Malaise [Not Recovered/Not Resolved]
  - Bladder prolapse [Not Recovered/Not Resolved]
  - Calculus urethral [Recovering/Resolving]
  - Stress [Not Recovered/Not Resolved]

NARRATIVE: CASE EVENT DATE: 201801
